FAERS Safety Report 9186223 (Version 1)
Quarter: 2013Q1

REPORT INFORMATION
  Report Type: Spontaneous
  Country: US (occurrence: None)
  Receive Date: 20120628
  Receipt Date: 20120628
  Transmission Date: 20140127
  Serious: Yes (Other)
  Sender: FDA-Public Use
  Company Number: PHEH2011US05092

PATIENT
  Sex: 0

DRUGS (1)
  1. RECLAST [Suspect]
     Dosage: 5 MG, ONCE YEARLY, INTRAVENOUS
     Route: 042
     Dates: start: 20110915

REACTIONS (2)
  - Pyrexia [None]
  - Back pain [None]
